FAERS Safety Report 7488175-1 (Version None)
Quarter: 2011Q2

REPORT INFORMATION
  Report Type: 
  Country: None (occurrence: None)
  Receive Date: 20110518
  Receipt Date: 20110511
  Transmission Date: 20111010
  Serious: Yes (Other)
  Sender: FDA-Public Use
  Company Number: US-ROCHE-776900

PATIENT
  Sex: Female
  Weight: 55.8 kg

DRUGS (10)
  1. XELODA [Suspect]
     Dosage: DOSE DECREASED
     Route: 048
     Dates: start: 20110214, end: 20110325
  2. MORPHINE [Concomitant]
  3. HERCEPTIN [Suspect]
     Route: 042
     Dates: start: 20110201
  4. XELODA [Suspect]
     Dosage: THERAPY TWO WEEKS ON/ONE WEEK OFF
     Route: 048
     Dates: start: 20110120, end: 20110209
  5. EFFEXOR [Concomitant]
  6. TYKERB [Concomitant]
     Dates: start: 20110120
  7. ZOMETA [Concomitant]
  8. TESSALON [Concomitant]
  9. XELODA [Suspect]
     Route: 048
     Dates: start: 20110510
  10. DECADRON [Concomitant]

REACTIONS (8)
  - TUMOUR MARKER INCREASED [None]
  - HAEMORRHAGE [None]
  - NEOPLASM MALIGNANT [None]
  - VOMITING [None]
  - BREAST CANCER METASTATIC [None]
  - STOMATITIS [None]
  - NEOPLASM PROGRESSION [None]
  - DIARRHOEA [None]
